FAERS Safety Report 19036022 (Version 1)
Quarter: 2021Q1

REPORT INFORMATION
  Report Type: Spontaneous
  Country: US (occurrence: US)
  Receive Date: 20210319
  Receipt Date: 20210319
  Transmission Date: 20210420
  Serious: Yes (Hospitalization)
  Sender: FDA-Public Use
  Company Number: None

PATIENT
  Age: 30 Month
  Sex: Male
  Weight: 13.4 kg

DRUGS (4)
  1. CARBOPLATIN. [Suspect]
     Active Substance: CARBOPLATIN
     Dates: end: 20210220
  2. ETOSPOSIDE (VP?16) [Suspect]
     Active Substance: ETOPOSIDE
     Dates: end: 20210220
  3. MELPHALAN. [Suspect]
     Active Substance: MELPHALAN
     Dates: end: 20210219
  4. G?CSF (FILGRASTIM, AMGEN) [Suspect]
     Active Substance: FILGRASTIM
     Dates: end: 20210309

REACTIONS (6)
  - Respiratory failure [None]
  - Lung infiltration [None]
  - Fluid overload [None]
  - Hypoxia [None]
  - Achromobacter infection [None]
  - Pulmonary veno-occlusive disease [None]

NARRATIVE: CASE EVENT DATE: 20210311
